FAERS Safety Report 17361978 (Version 4)
Quarter: 2020Q1

REPORT INFORMATION
  Report Type: Spontaneous
  Country: DE (occurrence: DE)
  Receive Date: 20200203
  Receipt Date: 20200320
  Transmission Date: 20200409
  Serious: Yes (Death, Other)
  Sender: FDA-Public Use
  Company Number: NVSC2019DE050212

PATIENT
  Age: 70 Year
  Sex: Male

DRUGS (7)
  1. IBRUTINIB [Suspect]
     Active Substance: IBRUTINIB
     Indication: B-CELL SMALL LYMPHOCYTIC LYMPHOMA
     Dosage: UNK
     Route: 065
  2. IBRUTINIB [Suspect]
     Active Substance: IBRUTINIB
     Indication: CYTOPENIA
  3. RITUXIMAB. [Suspect]
     Active Substance: RITUXIMAB
     Indication: B-CELL SMALL LYMPHOCYTIC LYMPHOMA
     Dosage: SINGLE INFUSION
     Route: 041
  4. BORTEZOMIB. [Suspect]
     Active Substance: BORTEZOMIB
     Indication: PANCYTOPENIA
     Dosage: UNK, FOUR COURSES
     Route: 065
  5. DEXAMETHASONE. [Suspect]
     Active Substance: DEXAMETHASONE
     Indication: PANCYTOPENIA
     Dosage: UNK, FOUR COURSES
     Route: 065
  6. RITUXIMAB. [Suspect]
     Active Substance: RITUXIMAB
     Indication: CYTOPENIA
  7. RIBAVIRIN. [Concomitant]
     Active Substance: RIBAVIRIN
     Indication: PRODUCT USED FOR UNKNOWN INDICATION
     Dosage: 1000 MG, DAILY
     Route: 065

REACTIONS (11)
  - Blood bilirubin increased [Fatal]
  - Pancytopenia [Fatal]
  - B-lymphocyte count decreased [Fatal]
  - Drug ineffective [Unknown]
  - Pulmonary mycosis [Fatal]
  - Intentional product use issue [Fatal]
  - Off label use [Fatal]
  - Hepatitis E [Fatal]
  - Alanine aminotransferase increased [Fatal]
  - Transaminases increased [Fatal]
  - Product use in unapproved indication [Unknown]
